FAERS Safety Report 5372669-9 (Version None)
Quarter: 2007Q2

REPORT INFORMATION
  Report Type: 
  Country: None (occurrence: None)
  Receive Date: 20070618
  Receipt Date: 20070508
  Transmission Date: 20071010
  Serious: No
  Sender: FDA-Public Use
  Company Number: 07-001042

PATIENT
  Age: 47 Year
  Sex: Female
  Weight: 54.4 kg

DRUGS (2)
  1. LOESTRIN 24 FE [Suspect]
     Indication: CONTRACEPTION
     Dosage: 20/1000UG, QD, ORAL
     Route: 048
     Dates: start: 20070201
  2. ZOLOFT [Concomitant]

REACTIONS (3)
  - AMENORRHOEA [None]
  - METRORRHAGIA [None]
  - OLIGOMENORRHOEA [None]
